FAERS Safety Report 17203627 (Version 1)
Quarter: 2019Q4

REPORT INFORMATION
  Report Type: Spontaneous
  Country: DK (occurrence: DK)
  Receive Date: 20191226
  Receipt Date: 20191226
  Transmission Date: 20200122
  Serious: Yes (Life-Threatening, Hospitalization, Other)
  Sender: FDA-Public Use
  Company Number: DK-MYLANLABS-2019M1128214

PATIENT
  Sex: Male

DRUGS (2)
  1. BACLOFENE MYLAN GENERICS [Suspect]
     Active Substance: BACLOFEN
     Indication: MUSCLE SPASTICITY
     Dosage: 1 DOSAGE FORM, QD
  2. BACLOFENE MYLAN GENERICS [Suspect]
     Active Substance: BACLOFEN
     Indication: PARKINSON^S DISEASE

REACTIONS (7)
  - Off label use [Recovered/Resolved]
  - Overdose [Recovered/Resolved]
  - Poisoning deliberate [Recovered/Resolved]
  - Drug abuse [Recovered/Resolved]
  - Fall [Unknown]
  - Loss of consciousness [Unknown]
  - Mental impairment [Unknown]
